FAERS Safety Report 14592989 (Version 1)
Quarter: 2018Q1

REPORT INFORMATION
  Report Type: Spontaneous
  Country: US (occurrence: US)
  Receive Date: 20180302
  Receipt Date: 20180302
  Transmission Date: 20180509
  Serious: No
  Sender: FDA-Public Use
  Company Number: US-ENDO PHARMACEUTICALS INC-2017-005342

PATIENT
  Age: 62 Year
  Sex: Male
  Weight: 83.9 kg

DRUGS (5)
  1. XIAFLEX [Suspect]
     Active Substance: COLLAGENASE CLOSTRIDIUM HISTOLYTICUM
     Dosage: UNK, 1 INJECTION INTO LEFT HAND, SINGLE
     Route: 026
     Dates: start: 2012, end: 2012
  2. XIAFLEX [Suspect]
     Active Substance: COLLAGENASE CLOSTRIDIUM HISTOLYTICUM
     Dosage: UNK UNK, UNKNOWN
     Route: 026
     Dates: start: 2013
  3. XIAFLEX [Suspect]
     Active Substance: COLLAGENASE CLOSTRIDIUM HISTOLYTICUM
     Dosage: UNK, 1 INJECTION INTO LEFT HAND, SINGLE
     Route: 026
     Dates: start: 2011, end: 2011
  4. XIAFLEX [Suspect]
     Active Substance: COLLAGENASE CLOSTRIDIUM HISTOLYTICUM
     Indication: DUPUYTREN^S CONTRACTURE
     Dosage: UNK, 1 INJECTION INTO CORD IN PALM OF LEFT HAND AND 1 INJECTION OF LEFT PINKY, SINGLE O
     Route: 026
     Dates: start: 20170925, end: 20170925
  5. FAMOTIDINE. [Concomitant]
     Active Substance: FAMOTIDINE
     Indication: GASTROOESOPHAGEAL REFLUX DISEASE
     Dosage: UNK

REACTIONS (16)
  - Muscle twitching [Not Recovered/Not Resolved]
  - Blood blister [Recovered/Resolved]
  - Spinal pain [Not Recovered/Not Resolved]
  - Breast pain [Not Recovered/Not Resolved]
  - Pain [Not Recovered/Not Resolved]
  - Lymphadenopathy [Unknown]
  - Hypoaesthesia [Unknown]
  - Tendonitis [Unknown]
  - Axillary pain [Not Recovered/Not Resolved]
  - Peripheral swelling [Recovered/Resolved]
  - Muscle spasms [Not Recovered/Not Resolved]
  - Joint injury [Unknown]
  - Arthralgia [Not Recovered/Not Resolved]
  - Contusion [Recovered/Resolved]
  - Myalgia [Not Recovered/Not Resolved]
  - Pain in extremity [Not Recovered/Not Resolved]

NARRATIVE: CASE EVENT DATE: 2017
